FAERS Safety Report 9336786 (Version 2)
Quarter: 2013Q2

REPORT INFORMATION
  Report Type: Spontaneous
  Country: JP (occurrence: JP)
  Receive Date: 20130607
  Receipt Date: 20130624
  Transmission Date: 20140414
  Serious: Yes (Other)
  Sender: FDA-Public Use
  Company Number: PHHY2013JP057345

PATIENT
  Sex: 0

DRUGS (1)
  1. DOCETAXEL SANDOZ [Suspect]

REACTIONS (1)
  - Dermatomyositis [Not Recovered/Not Resolved]
